FAERS Safety Report 8366055-7 (Version None)
Quarter: 2012Q2

REPORT INFORMATION
  Report Type: 
  Country: None (occurrence: None)
  Receive Date: 20120517
  Receipt Date: 20120508
  Transmission Date: 20120825
  Serious: Yes (Hospitalization)
  Sender: FDA-Public Use
  Company Number: US-ABBOTT-12P-163-0933927-00

PATIENT
  Sex: Female
  Weight: 42.676 kg

DRUGS (8)
  1. HUMIRA [Suspect]
     Indication: CROHN'S DISEASE
     Dates: start: 20100101, end: 20100101
  2. HYDROCODONE BITARTRATE + ACETAMINOPHEN [Concomitant]
     Indication: PAIN
  3. CALCIUM [Concomitant]
     Indication: MINERAL SUPPLEMENTATION
  4. COUMADIN [Concomitant]
     Indication: THROMBOSIS PROPHYLAXIS
  5. IRON [Concomitant]
     Indication: MINERAL SUPPLEMENTATION
  6. HUMIRA [Suspect]
     Dates: start: 20120301
  7. DIGOXIN [Concomitant]
     Indication: PRODUCT USED FOR UNKNOWN INDICATION
  8. NEXIUM [Concomitant]
     Indication: GASTROOESOPHAGEAL REFLUX DISEASE

REACTIONS (3)
  - CROHN'S DISEASE [None]
  - CEREBROVASCULAR ACCIDENT [None]
  - SEPSIS [None]
